FAERS Safety Report 13047403 (Version 1)
Quarter: 2016Q4

REPORT INFORMATION
  Report Type: Spontaneous
  Country: GB (occurrence: GB)
  Receive Date: 20161220
  Receipt Date: 20161220
  Transmission Date: 20170207
  Serious: Yes (Other)
  Sender: FDA-Public Use
  Company Number: GB-TEVA-721366ACC

PATIENT
  Age: 65 Year
  Sex: Female
  Weight: 68 kg

DRUGS (4)
  1. FLUOXETINE [Concomitant]
     Active Substance: FLUOXETINE HYDROCHLORIDE
  2. DOXAZOSIN [Suspect]
     Active Substance: DOXAZOSIN\DOXAZOSIN MESYLATE
     Indication: HYPERTENSION
     Route: 048
     Dates: start: 20161104, end: 20161123
  3. LAMOTRIGINE. [Concomitant]
     Active Substance: LAMOTRIGINE
  4. TRAZODONE [Concomitant]
     Active Substance: TRAZODONE HYDROCHLORIDE

REACTIONS (7)
  - Urinary incontinence [Recovering/Resolving]
  - Increased appetite [Recovering/Resolving]
  - Arrhythmia [Recovering/Resolving]
  - Palpitations [Recovering/Resolving]
  - Tremor [Recovering/Resolving]
  - Nervousness [Recovering/Resolving]
  - Back pain [Recovering/Resolving]

NARRATIVE: CASE EVENT DATE: 20161106
